FAERS Safety Report 9562828 (Version 1)
Quarter: 2013Q3

REPORT INFORMATION
  Report Type: Spontaneous
  Country: BG (occurrence: BG)
  Receive Date: 20130927
  Receipt Date: 20130927
  Transmission Date: 20140515
  Serious: Yes (Other)
  Sender: FDA-Public Use
  Company Number: BG-BAXTER-2013BAX037230

PATIENT
  Sex: 0

DRUGS (1)
  1. TISSEEL LYO [Suspect]
     Indication: ANORECTAL OPERATION

REACTIONS (2)
  - Disease recurrence [Unknown]
  - Anal fistula [Unknown]
